FAERS Safety Report 12961413 (Version 1)
Quarter: 2016Q4

REPORT INFORMATION
  Report Type: Spontaneous
  Country: US (occurrence: US)
  Receive Date: 20161121
  Receipt Date: 20161121
  Transmission Date: 20170207
  Serious: No
  Sender: FDA-Public Use
  Company Number: US-009507513-1611USA001542

PATIENT
  Age: 35 Year
  Sex: Male

DRUGS (2)
  1. HYPERSTAT [Suspect]
     Active Substance: DIAZOXIDE
     Indication: HYPOGLYCAEMIA
  2. SORAFENIB [Concomitant]
     Active Substance: SORAFENIB

REACTIONS (1)
  - Drug ineffective [Unknown]
